FAERS Safety Report 15070195 (Version 1)
Quarter: 2018Q2

REPORT INFORMATION
  Report Type: Spontaneous
  Country: ES (occurrence: ES)
  Receive Date: 20180626
  Receipt Date: 20180626
  Transmission Date: 20180711
  Serious: Yes (Other)
  Sender: FDA-Public Use
  Company Number: ES-SA-2018SA164097

PATIENT
  Age: 47 Year
  Sex: Male

DRUGS (1)
  1. AUBAGIO [Suspect]
     Active Substance: TERIFLUNOMIDE
     Indication: RELAPSING-REMITTING MULTIPLE SCLEROSIS
     Dosage: 1 TABLET DAILY
     Route: 048
     Dates: start: 20161028, end: 20180110

REACTIONS (1)
  - Carcinoma ex-pleomorphic adenoma [Recovered/Resolved]

NARRATIVE: CASE EVENT DATE: 20170716
